FAERS Safety Report 7237674-6 (Version None)
Quarter: 2011Q1

REPORT INFORMATION
  Report Type: 
  Country: None (occurrence: None)
  Receive Date: 20110121
  Receipt Date: 20110113
  Transmission Date: 20110831
  Serious: Yes (Hospitalization)
  Sender: FDA-Public Use
  Company Number: BR-ROCHE-741170

PATIENT
  Age: 27 Year
  Sex: Female

DRUGS (1)
  1. ROACUTAN [Suspect]
     Dosage: STOP DATE: 2010
     Route: 065
     Dates: start: 20101001

REACTIONS (1)
  - APPENDICITIS [None]
